FAERS Safety Report 5994710-2 (Version None)
Quarter: 2008Q4

REPORT INFORMATION
  Report Type: 
  Country: None (occurrence: None)
  Receive Date: 20081212
  Receipt Date: 20080609
  Transmission Date: 20090506
  Serious: No
  Sender: FDA-Public Use
  Company Number: US-AMGEN-KDL275441

PATIENT
  Sex: Female
  Weight: 54.5 kg

DRUGS (7)
  1. ENBREL [Suspect]
     Indication: RHEUMATOID ARTHRITIS
     Route: 058
     Dates: start: 20070601
  2. METHOTREXATE [Concomitant]
     Route: 048
  3. FOLIC ACID [Concomitant]
  4. PLAQUENIL [Concomitant]
  5. ALEVE [Concomitant]
  6. FORTEO [Concomitant]
  7. REMERON [Concomitant]

REACTIONS (2)
  - ANXIETY [None]
  - CATARACT [None]
